FAERS Safety Report 13653637 (Version 2)
Quarter: 2017Q2

REPORT INFORMATION
  Report Type: Spontaneous
  Country: FR (occurrence: FR)
  Receive Date: 20170614
  Receipt Date: 20170630
  Transmission Date: 20170830
  Serious: Yes (Hospitalization, Other)
  Sender: FDA-Public Use
  Company Number: FR-PFIZER INC-2017250780

PATIENT
  Age: 83 Year
  Sex: Male

DRUGS (10)
  1. XANAX [Suspect]
     Active Substance: ALPRAZOLAM
     Indication: BIPOLAR I DISORDER
     Dosage: 1 MG, AS NEEDED
     Route: 048
     Dates: start: 20170313, end: 20170314
  2. DIAMICRON [Concomitant]
     Active Substance: GLICLAZIDE
     Indication: TYPE 2 DIABETES MELLITUS
     Dosage: 30 MG, 1X/DAY
     Route: 048
  3. DEPAKOTE [Interacting]
     Active Substance: DIVALPROEX SODIUM
     Indication: BIPOLAR I DISORDER
     Dosage: 1 G, 2X/DAY
     Route: 048
     Dates: start: 2013
  4. DEPAKOTE [Interacting]
     Active Substance: DIVALPROEX SODIUM
     Dosage: 500 MG, 2X/DAY
     Dates: start: 20170314
  5. MOVICOL [Concomitant]
     Active Substance: POLYETHYLENE GLYCOL 3350\POTASSIUM CHLORIDE\SODIUM BICARBONATE\SODIUM CHLORIDE
     Dosage: UNK UNK, AS NEEDED
     Route: 048
  6. LOXAPAC /00401801/ [Interacting]
     Active Substance: LOXAPINE SUCCINATE
     Indication: BIPOLAR I DISORDER
     Dosage: 50 MG, AS NEEDED
     Route: 048
     Dates: start: 20170313, end: 20170314
  7. METFORMINE [Concomitant]
     Active Substance: METFORMIN HYDROCHLORIDE
     Indication: TYPE 2 DIABETES MELLITUS
     Dosage: 1000 MG, 2X/DAY
     Route: 048
  8. PERINDOPRIL [Concomitant]
     Active Substance: PERINDOPRIL
     Indication: CARDIAC FAILURE
     Dosage: 10 MG, 1X/DAY
     Route: 048
  9. SIMVASTATINE [Concomitant]
     Active Substance: SIMVASTATIN
     Dosage: 20 MG, 1X/DAY
     Route: 048
  10. KARDEGIC [Concomitant]
     Active Substance: ASPIRIN LYSINE
     Indication: HYPERTENSION
     Dosage: 160 MG, 1X/DAY
     Route: 048

REACTIONS (5)
  - Pneumonia aspiration [Recovered/Resolved]
  - Respiratory failure [Recovered/Resolved with Sequelae]
  - Drug interaction [Recovered/Resolved with Sequelae]
  - Respiratory distress [Recovered/Resolved with Sequelae]
  - Coma [Recovered/Resolved]

NARRATIVE: CASE EVENT DATE: 20170314
